FAERS Safety Report 16818156 (Version 1)
Quarter: 2019Q3

REPORT INFORMATION
  Report Type: Spontaneous
  Country: US (occurrence: US)
  Receive Date: 20190917
  Receipt Date: 20190917
  Transmission Date: 20191005
  Serious: No
  Sender: FDA-Public Use
  Company Number: US-MAYNE PHARMA-2019MYN000609

PATIENT

DRUGS (1)
  1. LEXETTE [Suspect]
     Active Substance: HALOBETASOL PROPIONATE
     Indication: PRODUCT USED FOR UNKNOWN INDICATION
     Dosage: UNK
     Route: 061
     Dates: start: 20190703, end: 20190704

REACTIONS (4)
  - Suspected product tampering [Unknown]
  - Product dose omission [Unknown]
  - Skin haemorrhage [Unknown]
  - Device malfunction [Unknown]
